FAERS Safety Report 4815625-9 (Version None)
Quarter: 2005Q4

REPORT INFORMATION
  Report Type: 
  Country: None (occurrence: None)
  Receive Date: 20051027
  Receipt Date: 20051014
  Transmission Date: 20060501
  Serious: Yes (Other)
  Sender: FDA-Public Use
  Company Number: 2005142377

PATIENT
  Age: 57 Year
  Sex: Male
  Weight: 90 kg

DRUGS (5)
  1. ATORVASTATIN CALCIUM [Suspect]
     Indication: DIABETES MELLITUS
     Dosage: (10 MG), ORAL
     Route: 048
     Dates: start: 20031201
  2. METFORMIN HCL [Concomitant]
  3. LEVOTHYROXINE SODIUM [Concomitant]
  4. RAMIPRIL [Concomitant]
  5. AMLODIPINE [Concomitant]

REACTIONS (1)
  - DIABETES MELLITUS INADEQUATE CONTROL [None]
